FAERS Safety Report 10563739 (Version 1)
Quarter: 2014Q4

REPORT INFORMATION
  Report Type: Spontaneous
  Country: US (occurrence: US)
  Receive Date: 20141104
  Receipt Date: 20141104
  Transmission Date: 20150529
  Serious: No
  Sender: FDA-Public Use
  Company Number: US-GLAXOSMITHKLINE-US2014007066

PATIENT
  Age: 47 Year
  Sex: Female

DRUGS (13)
  1. ADVAIR DISKUS [Suspect]
     Active Substance: FLUTICASONE PROPIONATE\SALMETEROL XINAFOATE
     Indication: ASTHMA
     Dosage: 500/50
     Route: 055
  2. CLARITIN [Concomitant]
     Active Substance: LORATADINE
  3. NEURONTIN [Concomitant]
     Active Substance: GABAPENTIN
  4. CATAPRES [Concomitant]
     Active Substance: CLONIDINE HYDROCHLORIDE
  5. GINKGO BILOBA [Concomitant]
     Active Substance: GINKGO
  6. PROZAC [Concomitant]
     Active Substance: FLUOXETINE HYDROCHLORIDE
  7. SEROQUEL [Concomitant]
     Active Substance: QUETIAPINE FUMARATE
  8. ABILIFY [Concomitant]
     Active Substance: ARIPIPRAZOLE
  9. IBUPROFEN. [Concomitant]
     Active Substance: IBUPROFEN
  10. VENTOLIN [Suspect]
     Active Substance: ALBUTEROL SULFATE
     Indication: ASTHMA
     Dosage: 2 PUFF(S), PRN
     Route: 055
  11. VOLTAREN [Concomitant]
     Active Substance: DICLOFENAC SODIUM
  12. PEPTO-BISMOL [Concomitant]
     Active Substance: BISMUTH SUBSALICYLATE\CALCIUM CARBONATE
  13. KLONOPIN [Concomitant]
     Active Substance: CLONAZEPAM

REACTIONS (3)
  - Feeling jittery [Unknown]
  - Stress [Not Recovered/Not Resolved]
  - Blood blister [Not Recovered/Not Resolved]

NARRATIVE: CASE EVENT DATE: 201409
